FAERS Safety Report 19041660 (Version 5)
Quarter: 2021Q3

REPORT INFORMATION
  Report Type: Report from Study
  Country: US (occurrence: US)
  Receive Date: 20210322
  Receipt Date: 20210716
  Transmission Date: 20211014
  Serious: No
  Sender: FDA-Public Use
  Company Number: US-AGIOS-2103US02595

PATIENT

DRUGS (4)
  1. TIBSOVO [Suspect]
     Active Substance: IVOSIDENIB
     Dosage: 250 MILLIGRAM, 2 TABLETS (500 MG), QD
     Route: 048
     Dates: start: 20210305
  2. TIBSOVO [Suspect]
     Active Substance: IVOSIDENIB
     Indication: BONE CANCER
     Dosage: 250 MILLIGRAM, 2 TABLETS (500 MG), QD
     Route: 048
     Dates: start: 20210305
  3. TIBSOVO [Suspect]
     Active Substance: IVOSIDENIB
     Dosage: 250 MILLIGRAM, 2 TABLETS (500 MG), QD
     Route: 048
     Dates: start: 20210305, end: 20210617
  4. TIBSOVO [Suspect]
     Active Substance: IVOSIDENIB
     Dosage: 250 MILLIGRAM, 2 TABLETS (500 MG), QD
     Route: 048
     Dates: start: 202102

REACTIONS (21)
  - Diarrhoea [Unknown]
  - Arthralgia [Unknown]
  - Drug ineffective for unapproved indication [Unknown]
  - Pulmonary function test abnormal [Unknown]
  - Insomnia [Unknown]
  - Fatigue [Unknown]
  - Feelings of worthlessness [Unknown]
  - Cough [Unknown]
  - Gingival pain [Unknown]
  - Nausea [Unknown]
  - Chest discomfort [Unknown]
  - Peripheral swelling [Unknown]
  - Abnormal dreams [Unknown]
  - Rash [Recovered/Resolved]
  - Decreased appetite [Unknown]
  - Weight increased [Unknown]
  - Dry eye [Unknown]
  - Phantom limb syndrome [Unknown]
  - Dyspnoea [Unknown]
  - Off label use [Recovered/Resolved]
  - Dysgeusia [Unknown]

NARRATIVE: CASE EVENT DATE: 20210305
